FAERS Safety Report 8161389-3 (Version None)
Quarter: 2012Q1

REPORT INFORMATION
  Report Type: 
  Country: None (occurrence: None)
  Receive Date: 20120224
  Receipt Date: 20111227
  Transmission Date: 20120608
  Serious: No
  Sender: FDA-Public Use
  Company Number: US-ALLERGAN-1116828US

PATIENT
  Sex: Male

DRUGS (2)
  1. LASTACAFT [Suspect]
     Indication: ASTHENOPIA
     Dosage: 2 GTT, QAM
     Route: 047
     Dates: start: 20111001, end: 20111001
  2. LASTACAFT [Suspect]
     Dosage: 2 GTT, QAM
     Route: 047
     Dates: start: 20111001, end: 20111001

REACTIONS (3)
  - EYE PRURITUS [None]
  - SCLERAL HYPERAEMIA [None]
  - CONJUNCTIVITIS INFECTIVE [None]
